FAERS Safety Report 11245565 (Version 1)
Quarter: 2015Q3

REPORT INFORMATION
  Report Type: Spontaneous
  Country: TW (occurrence: TW)
  Receive Date: 20150707
  Receipt Date: 20150707
  Transmission Date: 20151125
  Serious: Yes (Other)
  Sender: FDA-Public Use
  Company Number: TW-BAUSCH-BL-2015-016345

PATIENT
  Age: 51 Year
  Sex: Male

DRUGS (3)
  1. CALCIUM FOLINATE [Suspect]
     Active Substance: LEUCOVORIN CALCIUM
     Indication: LARYNGEAL SQUAMOUS CELL CARCINOMA
     Route: 065
  2. FLUOROURACIL. [Suspect]
     Active Substance: FLUOROURACIL
     Indication: LARYNGEAL SQUAMOUS CELL CARCINOMA
     Route: 065
  3. LEUCOVORIN. [Suspect]
     Active Substance: LEUCOVORIN
     Indication: LARYNGEAL SQUAMOUS CELL CARCINOMA

REACTIONS (3)
  - CD4 lymphocytes decreased [Recovering/Resolving]
  - Mucosal inflammation [Recovered/Resolved]
  - Dermatitis [Recovered/Resolved]
